FAERS Safety Report 24749299 (Version 1)
Quarter: 2024Q4

REPORT INFORMATION
  Report Type: Spontaneous
  Country: CA (occurrence: CA)
  Receive Date: 20241218
  Receipt Date: 20241218
  Transmission Date: 20250114
  Serious: Yes (Death, Other)
  Sender: INCYTE
  Company Number: CA-INCYTE CORPORATION-2024IN012663

PATIENT

DRUGS (1)
  1. PEMAZYRE [Suspect]
     Active Substance: PEMIGATINIB
     Dosage: UNK
     Route: 065

REACTIONS (3)
  - Death [Fatal]
  - Nail toxicity [Unknown]
  - Hyperphosphataemia [Recovered/Resolved]
